FAERS Safety Report 7208791-1 (Version None)
Quarter: 2010Q4

REPORT INFORMATION
  Report Type: 
  Country: None (occurrence: None)
  Receive Date: 20101222
  Receipt Date: 20101217
  Transmission Date: 20110411
  Serious: Yes (Hospitalization, Other)
  Sender: FDA-Public Use
  Company Number: 2010SP006052

PATIENT
  Age: 24 Year
  Sex: Female
  Weight: 117.9352 kg

DRUGS (3)
  1. NUVARING [Suspect]
     Indication: CONTRACEPTION
     Dosage: 1 DF;QM;VAG
     Route: 067
     Dates: start: 20080428, end: 20081002
  2. ZOLOFT [Concomitant]
  3. ATIVAN [Concomitant]

REACTIONS (19)
  - ABDOMINAL PAIN [None]
  - ATELECTASIS [None]
  - BRONCHITIS [None]
  - CONTUSION [None]
  - DIABETES MELLITUS [None]
  - DYSURIA [None]
  - FIBROCYSTIC BREAST DISEASE [None]
  - FLANK PAIN [None]
  - HEADACHE [None]
  - HERPES ZOSTER [None]
  - MUSCLE SPASMS [None]
  - MUSCULOSKELETAL CHEST PAIN [None]
  - OVARIAN CYST [None]
  - PASSIVE SMOKING [None]
  - PLEURAL EFFUSION [None]
  - PLEURISY [None]
  - PULMONARY EMBOLISM [None]
  - PULMONARY INFARCTION [None]
  - THROMBOPHLEBITIS SUPERFICIAL [None]
